FAERS Safety Report 4823744-6 (Version None)
Quarter: 2005Q4

REPORT INFORMATION
  Report Type: 
  Country: None (occurrence: None)
  Receive Date: 20051109
  Receipt Date: 20051103
  Transmission Date: 20060501
  Serious: Yes (Life-Threatening, Disabling)
  Sender: FDA-Public Use
  Company Number: BR-ROCHE-423466

PATIENT
  Age: 28 Year
  Sex: Male
  Weight: 55.5 kg

DRUGS (5)
  1. PEG-INTERFERON ALFA 2A (RO 25-8310) [Suspect]
     Route: 058
     Dates: start: 20050404, end: 20051103
  2. EPOGEN [Concomitant]
     Dates: start: 19920615
  3. METHYLDOPA [Concomitant]
     Dates: start: 19920615
  4. PROPRANOLOL [Concomitant]
     Dates: start: 19920615
  5. CAPTOPRIL [Concomitant]
     Dates: start: 20051004

REACTIONS (1)
  - HAEMORRHAGIC STROKE [None]
